FAERS Safety Report 6845332-2 (Version None)
Quarter: 2010Q3

REPORT INFORMATION
  Report Type: 
  Country: None (occurrence: None)
  Receive Date: 20100715
  Receipt Date: 20070820
  Transmission Date: 20110219
  Serious: No
  Sender: FDA-Public Use
  Company Number: US-PFIZER INC-2007069833

PATIENT
  Sex: Female
  Weight: 71.363 kg

DRUGS (5)
  1. CHANTIX [Suspect]
     Indication: SMOKING CESSATION THERAPY
     Route: 048
     Dates: start: 20070401
  2. WELLBUTRIN [Concomitant]
  3. IBUPROFEN [Concomitant]
  4. CALCIUM [Concomitant]
  5. PRILOSEC [Concomitant]

REACTIONS (5)
  - ABDOMINAL DISTENSION [None]
  - DEPRESSION [None]
  - FEELING ABNORMAL [None]
  - FLATULENCE [None]
  - PAIN [None]
